FAERS Safety Report 20091671 (Version 2)
Quarter: 2021Q4

REPORT INFORMATION
  Report Type: Report from Study
  Country: ES (occurrence: ES)
  Receive Date: 20211119
  Receipt Date: 20211122
  Transmission Date: 20220303
  Serious: Yes (Death, Hospitalization)
  Sender: FDA-Public Use
  Company Number: ES-SA-2020SA266247

PATIENT
  Age: 70 Year
  Sex: Male
  Weight: 73 kg

DRUGS (16)
  1. AFLIBERCEPT [Suspect]
     Active Substance: AFLIBERCEPT
     Indication: Colorectal cancer
     Dosage: 324 MG, Q3W
     Route: 042
     Dates: start: 20200707, end: 20200707
  2. AFLIBERCEPT [Suspect]
     Active Substance: AFLIBERCEPT
     Dosage: 324 MG, Q3W
     Route: 042
     Dates: start: 20200908, end: 20200908
  3. FLUOROURACIL [Suspect]
     Active Substance: FLUOROURACIL
     Indication: Colorectal cancer
     Dosage: 599.7 MG, Q3W
     Route: 040
     Dates: start: 20200707, end: 20200707
  4. FLUOROURACIL [Suspect]
     Active Substance: FLUOROURACIL
     Dosage: 599.7 MG, Q3W
     Route: 040
     Dates: start: 20200818, end: 20200818
  5. FLUOROURACIL [Suspect]
     Active Substance: FLUOROURACIL
     Dosage: 3998 MG, Q3W
     Route: 042
     Dates: start: 20200707, end: 20200707
  6. FLUOROURACIL [Suspect]
     Active Substance: FLUOROURACIL
     Dosage: 3998 MG, Q3W
     Route: 042
     Dates: start: 20200910, end: 20200910
  7. IRINOTECAN [Suspect]
     Active Substance: IRINOTECAN
     Indication: Colorectal cancer
     Dosage: 299.85 MG, Q3W
     Route: 042
     Dates: start: 20200707, end: 20200707
  8. IRINOTECAN [Suspect]
     Active Substance: IRINOTECAN
     Dosage: 299.85 MG, Q3W
     Route: 042
     Dates: start: 20200908, end: 20200908
  9. LEUCOVORIN [Suspect]
     Active Substance: LEUCOVORIN
     Indication: Colorectal cancer
     Dosage: 799.6 MG, QOW
     Route: 042
     Dates: start: 20200707, end: 20200707
  10. LEUCOVORIN [Suspect]
     Active Substance: LEUCOVORIN
     Dosage: 799.6 MG, QOW
     Route: 042
     Dates: start: 20200908, end: 20200908
  11. GLICLAZIDE [Concomitant]
     Active Substance: GLICLAZIDE
     Indication: Type 2 diabetes mellitus
     Dosage: UNK
     Route: 048
  12. METFORMIN [Concomitant]
     Active Substance: METFORMIN HYDROCHLORIDE
     Indication: Type 2 diabetes mellitus
     Dosage: UNK
     Route: 065
  13. DAPAGLIFLOZIN [Concomitant]
     Active Substance: DAPAGLIFLOZIN
     Indication: Type 2 diabetes mellitus
     Dosage: UNK
     Route: 048
  14. PIOGLITAZONE [Concomitant]
     Active Substance: PIOGLITAZONE
     Indication: Type 2 diabetes mellitus
     Dosage: UNK
     Route: 048
  15. LOSARTAN [Concomitant]
     Active Substance: LOSARTAN
     Indication: Type 2 diabetes mellitus
     Dosage: UNK
     Route: 048
  16. ATORVASTATIN [Concomitant]
     Active Substance: ATORVASTATIN
     Indication: Dyslipidaemia
     Dosage: UNK
     Route: 048

REACTIONS (2)
  - Malignant neoplasm progression [Fatal]
  - Fatigue [Recovered/Resolved]

NARRATIVE: CASE EVENT DATE: 20200916
